FAERS Safety Report 20618093 (Version 1)
Quarter: 2022Q1

REPORT INFORMATION
  Report Type: Spontaneous
  Country: US (occurrence: None)
  Receive Date: 20220321
  Receipt Date: 20220321
  Transmission Date: 20220424
  Serious: Yes (unspecified)
  Sender: FDA-Public Use
  Company Number: None

PATIENT
  Sex: Female

DRUGS (1)
  1. OCRELIZUMAB [Suspect]
     Active Substance: OCRELIZUMAB
     Indication: Multiple sclerosis
     Dosage: OTHER FREQUENCY : LOADING INFUSION;?
     Route: 040

REACTIONS (3)
  - Ear pruritus [None]
  - Dysphagia [None]
  - Infusion related reaction [None]

NARRATIVE: CASE EVENT DATE: 20220320
